FAERS Safety Report 16067408 (Version 1)
Quarter: 2019Q1

REPORT INFORMATION
  Report Type: Spontaneous
  Country: US (occurrence: US)
  Receive Date: 20190212
  Receipt Date: 20190212
  Transmission Date: 20190418
  Serious: No
  Sender: FDA-Public Use
  Company Number: None

PATIENT
  Age: 37 Year

DRUGS (2)
  1. SERTRALINE [Suspect]
     Active Substance: SERTRALINE HYDROCHLORIDE
     Indication: DEPRESSION
     Route: 048
     Dates: start: 20180430
  2. SERTRALINE [Suspect]
     Active Substance: SERTRALINE HYDROCHLORIDE

REACTIONS (13)
  - Orgasm abnormal [None]
  - Withdrawal syndrome [None]
  - Anxiety [None]
  - Condition aggravated [None]
  - Tremor [None]
  - Myalgia [None]
  - Depression [None]
  - Mood altered [None]
  - Agitation [None]
  - Drug dependence [None]
  - Pain in extremity [None]
  - Product physical issue [None]
  - Tinnitus [None]

NARRATIVE: CASE EVENT DATE: 20180430
